FAERS Safety Report 10799560 (Version 1)
Quarter: 2015Q1

REPORT INFORMATION
  Report Type: Report from Study
  Country: US (occurrence: US)
  Receive Date: 20150216
  Receipt Date: 20150216
  Transmission Date: 20150721
  Serious: No
  Sender: FDA-Public Use
  Company Number: US-ABBVIE-14K-163-1237341-00

PATIENT
  Age: 61 Year
  Sex: Male

DRUGS (4)
  1. HUMIRA [Suspect]
     Active Substance: ADALIMUMAB
     Indication: CROHN^S DISEASE
     Dates: start: 2012, end: 20131119
  2. HUMIRA [Suspect]
     Active Substance: ADALIMUMAB
     Dates: start: 20140219, end: 20140219
  3. HUMIRA [Suspect]
     Active Substance: ADALIMUMAB
     Dates: start: 20140319
  4. HUMIRA [Suspect]
     Active Substance: ADALIMUMAB
     Dates: start: 20140305, end: 20140305

REACTIONS (5)
  - Localised infection [Not Recovered/Not Resolved]
  - Drug ineffective [Unknown]
  - Laceration [Not Recovered/Not Resolved]
  - Skin discolouration [Not Recovered/Not Resolved]
  - Crohn^s disease [Unknown]

NARRATIVE: CASE EVENT DATE: 201306
